FAERS Safety Report 6273873-8 (Version None)
Quarter: 2009Q3

REPORT INFORMATION
  Report Type: 
  Country: None (occurrence: None)
  Receive Date: 20090716
  Receipt Date: 20090701
  Transmission Date: 20100115
  Serious: Yes (Hospitalization)
  Sender: FDA-Public Use
  Company Number: 310014M09FRA

PATIENT
  Sex: Female

DRUGS (2)
  1. GONAL-F [Suspect]
     Indication: IN VITRO FERTILISATION
     Dates: start: 20090111, end: 20090120
  2. CETROTIDE [Suspect]
     Indication: IN VITRO FERTILISATION
     Dosage: 0.25 MG, 1 IN 1 DAYS
     Dates: start: 20090111, end: 20090120

REACTIONS (2)
  - HYPERTENSION [None]
  - OVARIAN HYPERSTIMULATION SYNDROME [None]
